FAERS Safety Report 16362422 (Version 1)
Quarter: 2019Q2

REPORT INFORMATION
  Report Type: Spontaneous
  Country: US (occurrence: US)
  Receive Date: 20190528
  Receipt Date: 20190528
  Transmission Date: 20190711
  Serious: No
  Sender: FDA-Public Use
  Company Number: US-PFIZER INC-2019226060

PATIENT
  Age: 45 Year
  Sex: Male
  Weight: 139.71 kg

DRUGS (2)
  1. GABAPENTIN. [Suspect]
     Active Substance: GABAPENTIN
     Dosage: UNK, DAILY
  2. GABAPENTIN. [Suspect]
     Active Substance: GABAPENTIN
     Dosage: 4200 MG, DAILY (UP TO 14 OF THE GABAPENTIN 300 MG TABLETS A DAY)

REACTIONS (2)
  - Overdose [Unknown]
  - Drug ineffective [Unknown]
